FAERS Safety Report 25537329 (Version 1)
Quarter: 2025Q3

REPORT INFORMATION
  Report Type: Spontaneous
  Country: EU (occurrence: EU)
  Receive Date: 20250710
  Receipt Date: 20250710
  Transmission Date: 20251021
  Serious: Yes (Other)
  Sender: NOVO NORDISK
  Company Number: None

PATIENT
  Age: 73 Year
  Sex: Male
  Weight: 98 kg

DRUGS (1)
  1. SAXENDA [Suspect]
     Active Substance: LIRAGLUTIDE
     Indication: Obesity
     Dosage: 0.6 MG, QD
     Dates: start: 20250213, end: 20250320

REACTIONS (1)
  - Arterial thrombosis [Not Recovered/Not Resolved]
